FAERS Safety Report 12360230 (Version 2)
Quarter: 2017Q2

REPORT INFORMATION
  Report Type: Spontaneous
  Country: FR (occurrence: FR)
  Receive Date: 20160512
  Receipt Date: 20170530
  Transmission Date: 20170830
  Serious: Yes (Hospitalization)
  Sender: FDA-Public Use
  Company Number: FR-CLINIGEN GROUP PLC/ CLINIGEN HEALTHCARE LTD-FR-CLGN-16-00099

PATIENT
  Age: 50 Year
  Sex: Male

DRUGS (12)
  1. SERESTA [Concomitant]
     Active Substance: OXAZEPAM
     Indication: PRODUCT USED FOR UNKNOWN INDICATION
     Dates: start: 20160406, end: 20160407
  2. TANGANIL [Suspect]
     Active Substance: ACETYLLEUCINE
     Indication: DIZZINESS
     Route: 048
     Dates: end: 20160410
  3. FOSCAVIR [Suspect]
     Active Substance: FOSCARNET SODIUM
     Indication: HUMAN HERPESVIRUS 6 INFECTION
     Route: 042
     Dates: start: 20160408, end: 20160408
  4. CYMEVAN [Concomitant]
     Active Substance: GANCICLOVIR
     Indication: HUMAN HERPESVIRUS 6 INFECTION
     Dates: start: 20160408
  5. TRAMADOL BASE [Suspect]
     Active Substance: TRAMADOL
     Route: 048
     Dates: start: 20160409, end: 20160410
  6. LOVENOX [Concomitant]
     Active Substance: ENOXAPARIN SODIUM
     Indication: THROMBOSIS PROPHYLAXIS
     Route: 058
  7. TRIFLUCAN [Concomitant]
     Active Substance: FLUCONAZOLE
     Indication: FUNGAL INFECTION
     Dates: start: 20160409
  8. PARACETAMOL [Concomitant]
     Active Substance: ACETAMINOPHEN
     Indication: PAIN
     Route: 048
  9. FOSCAVIR [Suspect]
     Active Substance: FOSCARNET SODIUM
     Dates: end: 20160411
  10. TRAMADOL BASE [Suspect]
     Active Substance: TRAMADOL
     Indication: PAIN
     Dates: start: 20160406, end: 20160406
  11. INVANZ [Concomitant]
     Active Substance: ERTAPENEM SODIUM
     Indication: ESCHERICHIA BACTERAEMIA
     Dates: start: 20160401, end: 20160408
  12. AMIKACIN [Concomitant]
     Active Substance: AMIKACIN
     Indication: ESCHERICHIA BACTERAEMIA
     Dates: start: 20160401, end: 20160408

REACTIONS (8)
  - Seizure [Recovered/Resolved]
  - Coma [Recovered/Resolved]
  - Agitation [Not Recovered/Not Resolved]
  - Blood bicarbonate abnormal [Unknown]
  - Off label use [Recovered/Resolved]
  - Hallucination, visual [Not Recovered/Not Resolved]
  - Disorientation [Not Recovered/Not Resolved]
  - Confusional state [Not Recovered/Not Resolved]

NARRATIVE: CASE EVENT DATE: 20160408
